FAERS Safety Report 20092326 (Version 1)
Quarter: 2021Q4

REPORT INFORMATION
  Report Type: Spontaneous
  Country: US (occurrence: US)
  Receive Date: 20211119
  Receipt Date: 20211119
  Transmission Date: 20220303
  Serious: Yes (Other)
  Sender: FDA-Public Use
  Company Number: US-BAYER-2021A249396

PATIENT
  Age: 45 Year
  Sex: Male

DRUGS (1)
  1. LOTRIMIN ANTIFUNGAL (MICONAZOLE NITRATE) [Suspect]
     Active Substance: MICONAZOLE NITRATE
     Route: 061

REACTIONS (3)
  - Colon cancer [None]
  - Rash [None]
  - Recalled product administered [None]

NARRATIVE: CASE EVENT DATE: 20210101
